FAERS Safety Report 7488315-4 (Version None)
Quarter: 2011Q2

REPORT INFORMATION
  Report Type: 
  Country: None (occurrence: None)
  Receive Date: 20110518
  Receipt Date: 20110516
  Transmission Date: 20111010
  Serious: Yes (Hospitalization, Other)
  Sender: FDA-Public Use
  Company Number: AT-ABBOTT-08P-009-0475411-00

PATIENT
  Sex: Male
  Weight: 68 kg

DRUGS (4)
  1. HUMIRA [Suspect]
     Route: 058
     Dates: start: 20080909
  2. PANTOLOC [Concomitant]
     Indication: PROPHYLAXIS
     Dates: start: 20080803, end: 20080813
  3. AZATHIOPRINE [Concomitant]
     Indication: CROHN'S DISEASE
     Dates: start: 19970501, end: 20080801
  4. HUMIRA [Suspect]
     Indication: CROHN'S DISEASE
     Route: 058
     Dates: start: 20080430, end: 20080509

REACTIONS (3)
  - CROHN'S DISEASE [None]
  - COLONIC STENOSIS [None]
  - ENTEROCOLONIC FISTULA [None]
